FAERS Safety Report 10011888 (Version 1)
Quarter: 2014Q1

REPORT INFORMATION
  Report Type: Spontaneous
  Country: US (occurrence: None)
  Receive Date: 20140312
  Receipt Date: 20140312
  Transmission Date: 20141002
  Serious: Yes (Other)
  Sender: FDA-Public Use
  Company Number: 2014P1001871

PATIENT
  Age: 78 Year
  Sex: Female
  Weight: 68.04 kg

DRUGS (4)
  1. HYDROCHLOROTHIAZIDE [Suspect]
     Indication: HYPERTENSION
     Dosage: X1
     Route: 048
     Dates: start: 20140226
  2. CLONIDINE [Concomitant]
  3. LIPITOR [Concomitant]
  4. LORAZEPAM [Concomitant]

REACTIONS (2)
  - Oedema mouth [None]
  - Rash erythematous [None]
